FAERS Safety Report 5149757-5 (Version None)
Quarter: 2006Q4

REPORT INFORMATION
  Report Type: 
  Country: None (occurrence: None)
  Receive Date: 20061113
  Receipt Date: 20061109
  Transmission Date: 20070319
  Serious: Yes (Hospitalization, Other)
  Sender: FDA-Public Use
  Company Number: AU-BRISTOL-MYERS SQUIBB COMPANY-13571872

PATIENT
  Age: 56 Year
  Sex: Male

DRUGS (6)
  1. PRAVASTATIN SODIUM [Suspect]
     Route: 048
     Dates: end: 20050713
  2. RAMIPRIL [Suspect]
     Route: 048
     Dates: end: 20050713
  3. TENOFOVIR DISOPROXIL FUMARATE [Suspect]
     Route: 048
     Dates: start: 20030315, end: 20050713
  4. LAMIVUDINE [Suspect]
     Route: 048
     Dates: start: 20030115, end: 20050713
  5. KALETRA [Suspect]
     Route: 048
     Dates: start: 20030115, end: 20050713
  6. VALACYCLOVIR HCL [Suspect]
     Dates: end: 20050713

REACTIONS (7)
  - ACIDOSIS [None]
  - ACUTE PULMONARY OEDEMA [None]
  - CHEST PAIN [None]
  - DYSPNOEA [None]
  - HYPERHIDROSIS [None]
  - HYPOXIA [None]
  - RENAL FAILURE ACUTE [None]
